FAERS Safety Report 10897203 (Version 4)
Quarter: 2015Q2

REPORT INFORMATION
  Report Type: Spontaneous
  Country: US (occurrence: US)
  Receive Date: 20150309
  Receipt Date: 20150602
  Transmission Date: 20150821
  Serious: No
  Sender: FDA-Public Use
  Company Number: US-PFIZER INC-2015078735

PATIENT
  Age: 65 Year
  Sex: Male
  Weight: 127 kg

DRUGS (8)
  1. ASPIRIN. [Interacting]
     Active Substance: ASPIRIN
     Indication: THROMBOSIS PROPHYLAXIS
     Dosage: 325 MG, 2X/DAY
     Dates: start: 20150216
  2. PHENTERMINE [Concomitant]
     Active Substance: PHENTERMINE
     Dosage: UNK
     Dates: start: 20150217
  3. MONTELUKAST [Concomitant]
     Active Substance: MONTELUKAST SODIUM
     Indication: ASTHMA
     Dosage: UNK, 1X/DAY
     Dates: start: 20150217
  4. CELECOXIB. [Interacting]
     Active Substance: CELECOXIB
     Indication: INFLAMMATION
  5. CELECOXIB. [Suspect]
     Active Substance: CELECOXIB
     Indication: SWELLING
     Dosage: 100 MG, 1X/DAY
     Dates: start: 20150216
  6. PHENTERMINE [Concomitant]
     Active Substance: PHENTERMINE
     Indication: WEIGHT DECREASED
     Dosage: 37.5 MG, 1X/DAY
     Dates: start: 201410
  7. ADVAIR HFA [Concomitant]
     Active Substance: FLUTICASONE PROPIONATE\SALMETEROL XINAFOATE
     Indication: ASTHMA
     Dosage: UNK, 1X/DAY
     Dates: start: 20150217
  8. BENICAR [Concomitant]
     Active Substance: OLMESARTAN MEDOXOMIL
     Indication: HYPERTENSION
     Dosage: UNK, DAILY (40/12.5MG )

REACTIONS (3)
  - Potentiating drug interaction [Unknown]
  - Rash erythematous [Recovered/Resolved]
  - Pruritus [Recovered/Resolved]

NARRATIVE: CASE EVENT DATE: 20150216
